FAERS Safety Report 6671206-6 (Version None)
Quarter: 2010Q2

REPORT INFORMATION
  Report Type: 
  Country: None (occurrence: None)
  Receive Date: 20100407
  Receipt Date: 20100325
  Transmission Date: 20101027
  Serious: Yes (Hospitalization)
  Sender: FDA-Public Use
  Company Number: FI-WATSON-2010-04077

PATIENT
  Age: 29 Year
  Sex: Male

DRUGS (1)
  1. TEMAZEPAM [Suspect]
     Indication: DRUG USE FOR UNKNOWN INDICATION
     Dosage: UNK
     Route: 042

REACTIONS (3)
  - FINGER AMPUTATION [None]
  - INCORRECT ROUTE OF DRUG ADMINISTRATION [None]
  - VASCULAR INJURY [None]
